FAERS Safety Report 11130873 (Version 1)
Quarter: 2015Q2

REPORT INFORMATION
  Report Type: Spontaneous
  Country: US (occurrence: None)
  Receive Date: 20150521
  Receipt Date: 20150521
  Transmission Date: 20150821
  Serious: No
  Sender: FDA-Public Use
  Company Number: None

PATIENT
  Age: 6 Month
  Sex: Female
  Weight: 7.71 kg

DRUGS (1)
  1. TRI VITAMIN WITH FL 0.25MG COMPOUNDED [Suspect]
     Active Substance: ASCORBIC ACID\ERGOCALCIFEROL\RETINOL\SODIUM FLUORIDE
     Indication: VITAMIN SUPPLEMENTATION
     Route: 048
     Dates: start: 20150324, end: 20150511

REACTIONS (6)
  - Product compounding quality issue [None]
  - Drug dispensing error [None]
  - Blood calcium increased [None]
  - Incorrect dose administered [None]
  - Malaise [None]
  - Vitamin D increased [None]

NARRATIVE: CASE EVENT DATE: 20150324
